FAERS Safety Report 24947842 (Version 5)
Quarter: 2025Q3

REPORT INFORMATION
  Report Type: Spontaneous
  Country: EU (occurrence: EU)
  Receive Date: 20250210
  Receipt Date: 20250813
  Transmission Date: 20251020
  Serious: Yes (Hospitalization)
  Sender: ALEXION PHARMACEUTICALS
  Company Number: None

PATIENT
  Age: 78 Year
  Sex: Male
  Weight: 63 kg

DRUGS (23)
  1. TICAGRELOR [Suspect]
     Active Substance: TICAGRELOR
     Indication: Myocardial infarction
     Dosage: 2 DOSAGE FORM, QD
     Dates: start: 20250113, end: 20250117
  2. VISIPAQUE [Suspect]
     Active Substance: IODIXANOL
     Indication: Angiocardiogram
     Dates: start: 20250113, end: 20250113
  3. VISIPAQUE [Suspect]
     Active Substance: IODIXANOL
     Dates: start: 20250115, end: 20250115
  4. PROTAMINE [Suspect]
     Active Substance: PROTAMINE
     Indication: Angiocardiogram
     Dates: start: 20250115, end: 20250115
  5. PROTAMINE [Suspect]
     Active Substance: PROTAMINE
     Indication: Angiocardiogram
  6. XYLOCAINE [Suspect]
     Active Substance: LIDOCAINE HYDROCHLORIDE
     Indication: Angiocardiogram
     Dates: start: 20250113, end: 20250113
  7. XYLOCAINE [Suspect]
     Active Substance: LIDOCAINE HYDROCHLORIDE
     Dates: start: 20250115, end: 20250115
  8. LIDOCAINE [Concomitant]
     Active Substance: LIDOCAINE
     Indication: Product used for unknown indication
     Dates: start: 20250113, end: 20250113
  9. LIDOCAINE [Concomitant]
     Active Substance: LIDOCAINE
     Dates: start: 20250115, end: 20250115
  10. KARDEGIC [Concomitant]
     Active Substance: ASPIRIN DL-LYSINE
     Indication: Myocardial infarction
     Dosage: 1 DOSAGE FORM, QD
     Dates: start: 20250113, end: 20250122
  11. PERINDOPRIL [Suspect]
     Active Substance: PERINDOPRIL
     Indication: Hypertension
     Dosage: 2.5 MILLIGRAM, QD
     Dates: start: 20250114, end: 20250120
  12. PERINDOPRIL [Suspect]
     Active Substance: PERINDOPRIL
     Indication: Hypertension
  13. ATORVASTATIN [Suspect]
     Active Substance: ATORVASTATIN
     Indication: Prophylaxis
     Dosage: 80 MILLIGRAM, QD
     Dates: start: 20250113, end: 20250120
  14. ATORVASTATIN [Suspect]
     Active Substance: ATORVASTATIN
     Indication: Prophylaxis
  15. HEPARIN [Concomitant]
     Active Substance: HEPARIN SODIUM
     Indication: Product used for unknown indication
     Dates: start: 20250113, end: 20250113
  16. HEPARIN [Concomitant]
     Active Substance: HEPARIN SODIUM
     Dates: start: 20250113, end: 20250113
  17. HEPARIN [Concomitant]
     Active Substance: HEPARIN SODIUM
  18. VERAPAMIL HYDROCHLORIDE [Concomitant]
     Active Substance: VERAPAMIL HYDROCHLORIDE
     Indication: Product used for unknown indication
     Dates: start: 20250113, end: 20250113
  19. ISOSORBIDE [Concomitant]
     Active Substance: ISOSORBIDE
     Indication: Product used for unknown indication
     Dates: start: 20250113, end: 20250113
  20. LANSOPRAZOLE [Concomitant]
     Active Substance: LANSOPRAZOLE
     Indication: Product used for unknown indication
     Dosage: 15 MILLIGRAM, QD
     Dates: start: 20250115, end: 20250122
  21. BISOPROLOL FUMARATE [Concomitant]
     Active Substance: BISOPROLOL FUMARATE
     Indication: Product used for unknown indication
     Dosage: 5 MILLIGRAM, QD
  22. ASPIRIN LYSINE [Concomitant]
     Active Substance: ASPIRIN LYSINE
     Indication: Product used for unknown indication
     Dosage: 250 MILLIGRAM, QD
     Dates: start: 20250113, end: 20250113
  23. RAMIPRIL [Concomitant]
     Active Substance: RAMIPRIL
     Indication: Product used for unknown indication
     Dosage: 2.5 MILLIGRAM, QD
     Dates: start: 20250113, end: 20250114

REACTIONS (2)
  - Eosinophilia [Not Recovered/Not Resolved]
  - Rash [Recovering/Resolving]

NARRATIVE: CASE EVENT DATE: 20250115
